FAERS Safety Report 7138292-0 (Version None)
Quarter: 2010Q4

REPORT INFORMATION
  Report Type: 
  Country: None (occurrence: None)
  Receive Date: 20101206
  Receipt Date: 20101124
  Transmission Date: 20110411
  Serious: No
  Sender: FDA-Public Use
  Company Number: US-ROXANE LABORATORIES, INC.-2010-RO-01550RO

PATIENT
  Age: 10 Year
  Sex: Male

DRUGS (1)
  1. FUROSEMIDE [Suspect]
     Dosage: 1.5 ML
     Route: 048
     Dates: start: 20020101

REACTIONS (1)
  - PRODUCT TASTE ABNORMAL [None]
